FAERS Safety Report 4873440-4 (Version None)
Quarter: 2006Q1

REPORT INFORMATION
  Report Type: 
  Country: None (occurrence: None)
  Receive Date: 20060105
  Receipt Date: 20051229
  Transmission Date: 20060701
  Serious: Yes (Death, Congenital Anomaly, Other)
  Sender: FDA-Public Use
  Company Number: FR-ABBOTT-05P-056-0320927-00

PATIENT
  Sex: Male

DRUGS (1)
  1. DEPAKENE [Suspect]
     Indication: DRUG EXPOSURE DURING PREGNANCY

REACTIONS (14)
  - CATARACT CONGENITAL [None]
  - CONGENITAL CENTRAL NERVOUS SYSTEM ANOMALY [None]
  - CONGENITAL DIAPHRAGMATIC HERNIA [None]
  - CONGENITAL HAND MALFORMATION [None]
  - CONGENITAL HYDRONEPHROSIS [None]
  - CONGENITAL MULTIPLEX ARTHROGRYPOSIS [None]
  - CRYPTORCHISM [None]
  - DEATH [None]
  - DRUG EXPOSURE DURING PREGNANCY [None]
  - EAR MALFORMATION [None]
  - EXTERNAL AUDITORY CANAL ATRESIA [None]
  - FOETAL GROWTH RETARDATION [None]
  - PENILE SIZE REDUCED [None]
  - SINGLE UMBILICAL ARTERY [None]
